FAERS Safety Report 25282652 (Version 2)
Quarter: 2025Q2

REPORT INFORMATION
  Report Type: Spontaneous
  Country: US (occurrence: US)
  Receive Date: 20250508
  Receipt Date: 20250520
  Transmission Date: 20250717
  Serious: Yes (Other)
  Sender: TEVA
  Company Number: US-TEVA-VS-3327638

PATIENT
  Age: 82 Year
  Sex: Male

DRUGS (4)
  1. CARBOPLATIN [Suspect]
     Active Substance: CARBOPLATIN
     Indication: Squamous cell carcinoma of skin
     Route: 065
     Dates: start: 202112
  2. ALPELISIB [Suspect]
     Active Substance: ALPELISIB
     Indication: Squamous cell carcinoma of skin
     Route: 065
     Dates: start: 202208
  3. PEMBROLIZUMAB [Suspect]
     Active Substance: PEMBROLIZUMAB
     Indication: Squamous cell carcinoma of skin
     Route: 065
     Dates: start: 202201, end: 202207
  4. PACLITAXEL [Suspect]
     Active Substance: PACLITAXEL
     Indication: Squamous cell carcinoma of skin
     Route: 065
     Dates: start: 202112

REACTIONS (5)
  - Oedema [Recovering/Resolving]
  - Rash [Recovering/Resolving]
  - Pyrexia [Recovering/Resolving]
  - Treatment noncompliance [Unknown]
  - Drug ineffective [Unknown]
